FAERS Safety Report 5309954-2 (Version None)
Quarter: 2007Q2

REPORT INFORMATION
  Report Type: 
  Country: None (occurrence: None)
  Receive Date: 20070427
  Receipt Date: 20070420
  Transmission Date: 20071010
  Serious: Yes (Hospitalization)
  Sender: FDA-Public Use
  Company Number: 2007UW07841

PATIENT
  Age: 615 Month
  Sex: Female
  Weight: 83.6 kg

DRUGS (8)
  1. SEROQUEL [Suspect]
     Indication: DEPRESSION
     Dosage: 100 MG TO 900 MG
     Route: 048
  2. HALDOL [Concomitant]
     Dates: start: 19760101
  3. NAVANE [Concomitant]
     Dates: start: 19800101
  4. RISPERDAL [Concomitant]
     Dates: start: 19900101
  5. THORAZINE [Concomitant]
     Dates: start: 19900101
  6. OLANZAPINE [Concomitant]
  7. DEPAKOTE [Concomitant]
     Dates: start: 19900101
  8. MESCALINE [Concomitant]
     Dates: start: 19800101

REACTIONS (4)
  - CEREBROVASCULAR ACCIDENT [None]
  - DIABETES MELLITUS NON-INSULIN-DEPENDENT [None]
  - DIABETIC COMA [None]
  - PANCREATITIS [None]
